FAERS Safety Report 21004307 (Version 4)
Quarter: 2022Q3

REPORT INFORMATION
  Report Type: Spontaneous
  Country: US (occurrence: US)
  Receive Date: 20220624
  Receipt Date: 20220706
  Transmission Date: 20221027
  Serious: No
  Sender: FDA-Public Use
  Company Number: US-PFIZER INC-202200878921

PATIENT
  Age: 23 Year
  Sex: Male
  Weight: 83.91 kg

DRUGS (11)
  1. CLINDAMYCIN PHOSPHATE [Suspect]
     Active Substance: CLINDAMYCIN PHOSPHATE
     Dosage: UNK, 1X/DAY (APPLY AT BETIME TO FACE)
  2. DOXYCYCLINE HYCLATE [Suspect]
     Active Substance: DOXYCYCLINE HYCLATE
     Dosage: 50 MG, 2X/DAY
     Route: 048
  3. FLUCONAZOLE [Suspect]
     Active Substance: FLUCONAZOLE
     Dosage: 150 MG, DAILY
     Route: 048
  4. KETOCONAZOLE [Suspect]
     Active Substance: KETOCONAZOLE
     Dosage: UNK, 2X/DAY (45 GRAMS
  5. CLOBETASOL [Suspect]
     Active Substance: CLOBETASOL
     Dosage: UNK
  6. TRIAMCINOLONE [Suspect]
     Active Substance: TRIAMCINOLONE
     Dosage: UNK, 2X/DAY (APPLY TO BODY)
  7. HYDROXYZINE HYDROCHLORIDE [Suspect]
     Active Substance: HYDROXYZINE HYDROCHLORIDE
     Dosage: 25 MG, 1X/DAY (AT BEDTIME)
  8. PREDNISONE [Suspect]
     Active Substance: PREDNISONE
     Dosage: 6 DF (FOR 5 DAYS)
  9. PREDNISONE [Suspect]
     Active Substance: PREDNISONE
     Dosage: 4 DF (FOR 5 DAYS)
  10. PREDNISONE [Suspect]
     Active Substance: PREDNISONE
     Dosage: 2 DF (FOR 5 DAYS)
  11. PREDNISONE [Suspect]
     Active Substance: PREDNISONE
     Dosage: 1 DF, DAILY (FOR 5 DAYS)

REACTIONS (1)
  - Drug ineffective [Unknown]
